FAERS Safety Report 21655732 (Version 1)
Quarter: 2022Q4

REPORT INFORMATION
  Report Type: Spontaneous
  Country: US (occurrence: US)
  Receive Date: 20221129
  Receipt Date: 20221129
  Transmission Date: 20230113
  Serious: No
  Sender: FDA-Public Use
  Company Number: US-TEVA-2022-US-2828005

PATIENT
  Sex: Female

DRUGS (1)
  1. OLOPATADINE [Suspect]
     Active Substance: OLOPATADINE
     Indication: Product used for unknown indication
     Dosage: .02 PERCENT DAILY; CLEAR EYES ONCE DAILY EYE ALLERGY ITCH RELIEF, 0.02 PERCENT, USED 3 TIMES, 114371
     Route: 047

REACTIONS (1)
  - Superficial injury of eye [Unknown]
